FAERS Safety Report 18538911 (Version 4)
Quarter: 2021Q4

REPORT INFORMATION
  Report Type: Spontaneous
  Country: US (occurrence: US)
  Receive Date: 20201124
  Receipt Date: 20211227
  Transmission Date: 20220303
  Serious: Yes (Hospitalization, Other)
  Sender: FDA-Public Use
  Company Number: US-PFIZER INC-2020458656

PATIENT
  Age: 51 Year
  Sex: Male

DRUGS (4)
  1. PHENYTOIN [Suspect]
     Active Substance: PHENYTOIN
     Indication: Seizure
     Dosage: 300 MG, (NIGHTLY FOR APPROXIMATELY 20 YEARS)
     Route: 048
  2. PHENYTOIN [Suspect]
     Active Substance: PHENYTOIN
     Dosage: 200 MG, (200 MG NIGHTLY)
     Route: 048
  3. PHENYTOIN [Suspect]
     Active Substance: PHENYTOIN
     Dosage: 130 MG, (130 MG NIGHTLY 11 MONTHS)
     Route: 048
  4. OMEPRAZOLE [Concomitant]
     Active Substance: OMEPRAZOLE
     Dosage: UNK

REACTIONS (2)
  - Toxicity to various agents [Recovered/Resolved]
  - Mental status changes [Unknown]
